FAERS Safety Report 13035203 (Version 2)
Quarter: 2016Q4

REPORT INFORMATION
  Report Type: Spontaneous
  Country: IT (occurrence: IT)
  Receive Date: 20161216
  Receipt Date: 20161221
  Transmission Date: 20170207
  Serious: Yes (Hospitalization, Other)
  Sender: FDA-Public Use
  Company Number: IT-TEVA-708177ACC

PATIENT
  Age: 62 Year
  Sex: Male

DRUGS (3)
  1. ASPIRIN. [Suspect]
     Active Substance: ASPIRIN
     Indication: ANTICOAGULANT THERAPY
  2. CLOPIDOGREL [Suspect]
     Active Substance: CLOPIDOGREL BISULFATE
     Indication: ANTICOAGULANT THERAPY
  3. ASPIRIN. [Suspect]
     Active Substance: ASPIRIN
     Indication: MYOCARDIAL ISCHAEMIA

REACTIONS (11)
  - Drug ineffective [Unknown]
  - Cardiac arrest [Unknown]
  - Tachycardia [Unknown]
  - Anaemia [Unknown]
  - Ulcer [Unknown]
  - Melaena [Unknown]
  - Arteriosclerosis coronary artery [Unknown]
  - Angina pectoris [Unknown]
  - Ventricular tachycardia [Unknown]
  - Coronary ostial stenosis [Unknown]
  - Vascular stent restenosis [Unknown]
